FAERS Safety Report 10027909 (Version 4)
Quarter: 2014Q4

REPORT INFORMATION
  Report Type: Report from Study
  Country: US (occurrence: US)
  Receive Date: 20140321
  Receipt Date: 20141003
  Transmission Date: 20150528
  Serious: Yes (Other)
  Sender: FDA-Public Use
  Company Number: US-SA-2013SA103272

PATIENT
  Age: 36 Year
  Sex: Female
  Weight: 47.62 kg

DRUGS (3)
  1. AUBAGIO [Suspect]
     Active Substance: TERIFLUNOMIDE
     Indication: MULTIPLE SCLEROSIS
     Route: 048
     Dates: start: 20130924
  2. ACTHAR [Suspect]
     Active Substance: CORTICOTROPIN
     Indication: PRODUCT USED FOR UNKNOWN INDICATION
     Route: 065
  3. AUBAGIO [Suspect]
     Active Substance: TERIFLUNOMIDE
     Indication: MULTIPLE SCLEROSIS
     Route: 048

REACTIONS (6)
  - Drug dose omission [Unknown]
  - Pain in extremity [Unknown]
  - Alopecia [Recovered/Resolved]
  - Hot flush [Recovered/Resolved]
  - Abasia [Unknown]
  - Multiple sclerosis relapse [Unknown]
